FAERS Safety Report 7920740-7 (Version None)
Quarter: 2011Q4

REPORT INFORMATION
  Report Type: 
  Country: None (occurrence: None)
  Receive Date: 20111117
  Receipt Date: 20111114
  Transmission Date: 20120403
  Serious: Yes (Hospitalization)
  Sender: FDA-Public Use
  Company Number: CA-ABBOTT-11P-028-0870079-00

PATIENT
  Sex: Female
  Weight: 49 kg

DRUGS (6)
  1. HUMIRA [Suspect]
     Indication: CROHN'S DISEASE
     Dosage: 160MG AT WEEK 0
     Route: 058
     Dates: start: 20110519, end: 20110519
  2. AZATHIOPRINE [Concomitant]
     Indication: PRODUCT USED FOR UNKNOWN INDICATION
  3. LAMOTRIGINE [Concomitant]
     Indication: CONVULSION
  4. HUMIRA [Suspect]
     Dosage: 80MG AT WEEK 2 (02 JUN 2011)
     Dates: start: 20110602, end: 20110602
  5. HUMIRA [Suspect]
     Dosage: 40MG AT WEEK 4 (16 JUN 2011), 6, (30 JUN 2011)8 (14 JUL 2011)
     Dates: start: 20110616, end: 20110714
  6. HUMIRA [Suspect]
     Dosage: 80MG AT WEEK 10  80MG AT WEEK 10  80MG AT WEEK 10
     Dates: start: 20110728

REACTIONS (4)
  - DRUG INEFFECTIVE [None]
  - IMPETIGO [None]
  - PYREXIA [None]
  - INFLAMMATORY BOWEL DISEASE [None]
